FAERS Safety Report 5056038-7 (Version None)
Quarter: 2006Q3

REPORT INFORMATION
  Report Type: 
  Country: None (occurrence: None)
  Receive Date: 20060717
  Receipt Date: 20060717
  Transmission Date: 20061208
  Serious: No
  Sender: FDA-Public Use
  Company Number: None

PATIENT
  Age: 31 Year
  Sex: Female

DRUGS (1)
  1. SEPTRA [Suspect]
     Dosage: ORAL;
     Route: 048
     Dates: start: 20060524, end: 20060526

REACTIONS (4)
  - ARTHRALGIA [None]
  - CHILLS [None]
  - HEADACHE [None]
  - RASH PAPULAR [None]
